FAERS Safety Report 6105830-6 (Version None)
Quarter: 2009Q1

REPORT INFORMATION
  Report Type: 
  Country: None (occurrence: None)
  Receive Date: 20090305
  Receipt Date: 20090305
  Transmission Date: 20090719
  Serious: Yes (Other)
  Sender: FDA-Public Use
  Company Number: None

PATIENT
  Age: 61 Year
  Sex: Female
  Weight: 67.1324 kg

DRUGS (1)
  1. LAMOTRIGINE [Suspect]
     Indication: DEPRESSION
     Dosage: 1/2 TAB FOR 7 DAYS THEN 1 TAB FOR 7 DAYS, THEN 1 1/2 TAB DAILY ORAL
     Route: 048
     Dates: start: 20090130, end: 20090209

REACTIONS (8)
  - DIARRHOEA [None]
  - DRUG DISPENSING ERROR [None]
  - FLATULENCE [None]
  - GASTROINTESTINAL PAIN [None]
  - INCORRECT DOSE ADMINISTERED [None]
  - MALAISE [None]
  - MEDICATION ERROR [None]
  - RASH GENERALISED [None]
